FAERS Safety Report 8801766 (Version 1)
Quarter: 2012Q4

REPORT INFORMATION
  Report Type: 
  Country: US (occurrence: US)
  Receive Date: 20120921
  Receipt Date: 20120921
  Transmission Date: 20130627
  Serious: Yes (Other)
  Sender: FDA-Public Use
  Company Number: US-ROCHE-1132535

PATIENT
  Age: 64 Year
  Sex: Male

DRUGS (1)
  1. BEVACIZUMAB [Suspect]
     Indication: ANGIOSARCOMA METASTATIC
     Route: 065

REACTIONS (2)
  - Thrombotic microangiopathy [Unknown]
  - IgA nephropathy [Unknown]
